FAERS Safety Report 21499269 (Version 1)
Quarter: 2022Q4

REPORT INFORMATION
  Report Type: Spontaneous
  Country: GR (occurrence: GR)
  Receive Date: 20221024
  Receipt Date: 20221024
  Transmission Date: 20230113
  Serious: Yes (Other)
  Sender: FDA-Public Use
  Company Number: None

PATIENT
  Sex: Male

DRUGS (7)
  1. ABILIFY [Suspect]
     Active Substance: ARIPIPRAZOLE
     Indication: Product used for unknown indication
     Dosage: 5-10 MG
     Route: 065
     Dates: start: 2021, end: 2022
  2. ZOLOFT [Suspect]
     Active Substance: SERTRALINE HYDROCHLORIDE
     Indication: Obsessive-compulsive disorder
     Dosage: 50-300 MG
     Route: 065
     Dates: start: 2021, end: 2022
  3. ZOLOFT [Suspect]
     Active Substance: SERTRALINE HYDROCHLORIDE
     Dosage: 25 MG
     Route: 065
     Dates: start: 2012, end: 2019
  4. ZOLOFT [Suspect]
     Active Substance: SERTRALINE HYDROCHLORIDE
     Dosage: 50 MG
     Route: 065
     Dates: start: 2019, end: 2021
  5. SERTRALINE HYDROCHLORIDE [Suspect]
     Active Substance: SERTRALINE HYDROCHLORIDE
     Indication: Obsessive-compulsive disorder
     Dosage: 50-300 MG
     Route: 065
     Dates: start: 2021, end: 2022
  6. SERTRALINE HYDROCHLORIDE [Suspect]
     Active Substance: SERTRALINE HYDROCHLORIDE
     Dosage: 25 MG
     Route: 065
     Dates: start: 2012, end: 2019
  7. SERTRALINE HYDROCHLORIDE [Suspect]
     Active Substance: SERTRALINE HYDROCHLORIDE
     Dosage: 50 MG
     Route: 065
     Dates: start: 2019, end: 2021

REACTIONS (16)
  - Slow response to stimuli [Unknown]
  - Depersonalisation/derealisation disorder [Unknown]
  - Oligodipsia [Unknown]
  - Anhidrosis [Unknown]
  - Emotional poverty [Unknown]
  - Sexual dysfunction [Unknown]
  - Hypoaesthesia [Unknown]
  - Mental impairment [Unknown]
  - Feeling abnormal [Unknown]
  - Apathy [Unknown]
  - Tic [Unknown]
  - Myoclonus [Unknown]
  - Hyperprolactinaemia [Unknown]
  - Decreased appetite [Unknown]
  - Insomnia [Unknown]
  - Akathisia [Unknown]
